FAERS Safety Report 13588493 (Version 2)
Quarter: 2017Q3

REPORT INFORMATION
  Report Type: Spontaneous
  Country: US (occurrence: US)
  Receive Date: 20170529
  Receipt Date: 20170926
  Transmission Date: 20171127
  Serious: No
  Sender: FDA-Public Use
  Company Number: US-CELGENEUS-USA-20170505795

PATIENT
  Age: 41 Year
  Sex: Female

DRUGS (2)
  1. HALOG [Concomitant]
     Active Substance: HALCINONIDE
     Indication: PSORIATIC ARTHROPATHY
     Route: 061
     Dates: start: 20161220
  2. OTEZLA [Suspect]
     Active Substance: APREMILAST
     Indication: PSORIATIC ARTHROPATHY
     Dosage: 60 MILLIGRAM
     Route: 048
     Dates: start: 20170320

REACTIONS (1)
  - Therapeutic response decreased [Unknown]

NARRATIVE: CASE EVENT DATE: 20170513
